FAERS Safety Report 23637319 (Version 5)
Quarter: 2024Q3

REPORT INFORMATION
  Report Type: Spontaneous
  Country: GB (occurrence: GB)
  Receive Date: 20240315
  Receipt Date: 20240927
  Transmission Date: 20241017
  Serious: Yes (Hospitalization)
  Sender: MYLAN
  Company Number: GB-MYLANLABS-2023M1137789

PATIENT
  Age: 19 Year
  Sex: Female

DRUGS (4)
  1. CLOZARIL [Suspect]
     Active Substance: CLOZAPINE
     Indication: Schizophrenia
     Dosage: UNK
     Route: 048
     Dates: start: 20210623
  2. CLOZARIL [Suspect]
     Active Substance: CLOZAPINE
     Indication: Borderline personality disorder
     Dosage: UNK
     Route: 065
     Dates: start: 20231222
  3. CLOZARIL [Suspect]
     Active Substance: CLOZAPINE
     Indication: Post-traumatic stress disorder
     Dosage: UNK
     Route: 048
     Dates: start: 20240509
  4. CLOZARIL [Suspect]
     Active Substance: CLOZAPINE
     Indication: Suicidal ideation
     Dosage: UNK (PROPOSED DATE OF COMMENCEMENT: 25-SEP-2024)
     Route: 065

REACTIONS (5)
  - Malaise [Unknown]
  - Hospitalisation [Unknown]
  - Treatment noncompliance [Unknown]
  - Off label use [Unknown]
  - Platelet count increased [Unknown]

NARRATIVE: CASE EVENT DATE: 20231201
